FAERS Safety Report 6063500-7 (Version None)
Quarter: 2009Q1

REPORT INFORMATION
  Report Type: 
  Country: None (occurrence: None)
  Receive Date: 20090203
  Receipt Date: 20090129
  Transmission Date: 20090719
  Serious: Yes (Life-Threatening, Hospitalization, Other)
  Sender: FDA-Public Use
  Company Number: ZA-B.I. PHARMACEUTICALS,INC./RIDGEFIELD-2008-BP-18154BP

PATIENT
  Age: 35 Year
  Sex: Female
  Weight: 67 kg

DRUGS (6)
  1. VIRAMUNE [Suspect]
     Indication: HIV INFECTION
     Route: 048
     Dates: start: 20071222
  2. ZIDOVUDINE [Suspect]
     Indication: HIV INFECTION
     Route: 048
     Dates: start: 20080806
  3. EMTRICITABINE [Suspect]
     Indication: HIV INFECTION
     Dosage: 200MG
     Route: 048
     Dates: start: 20080806
  4. TRUVADA [Suspect]
     Indication: HIV INFECTION
     Dosage: 500MG
     Route: 048
     Dates: start: 20071222, end: 20080806
  5. CETRIZINE [Concomitant]
  6. ASCORBIC ACID [Concomitant]

REACTIONS (2)
  - INTRA-UTERINE DEATH [None]
  - PRE-ECLAMPSIA [None]
